FAERS Safety Report 18962985 (Version 2)
Quarter: 2021Q2

REPORT INFORMATION
  Report Type: Report from Study
  Country: US (occurrence: US)
  Receive Date: 20210303
  Receipt Date: 20210616
  Transmission Date: 20210717
  Serious: Yes (Hospitalization)
  Sender: FDA-Public Use
  Company Number: US-CELGENEUS-USA-20210105587

PATIENT
  Age: 78 Year
  Sex: Female
  Weight: 56 kg

DRUGS (20)
  1. SODIUM CHLORIDE. [Concomitant]
     Active Substance: SODIUM CHLORIDE
     Indication: SUPPORTIVE CARE
     Dosage: 1,000 ML X 1 X 2 HOURS
     Route: 042
     Dates: start: 20210108, end: 20210108
  2. ZOVIRAX [Concomitant]
     Active Substance: ACYCLOVIR
     Indication: PROPHYLAXIS
     Dosage: 400 MG X 2 X 1 DAYS
     Route: 042
     Dates: start: 20210112, end: 20210127
  3. CYCLOPHOSPHAMIDE. [Suspect]
     Active Substance: CYCLOPHOSPHAMIDE
     Dosage: 470 MG X ONCE
     Route: 042
     Dates: start: 20210109, end: 20210109
  4. FLUDARABINE [Suspect]
     Active Substance: FLUDARABINE PHOSPHATE
     Dosage: 37.5 MG X ONCE
     Route: 042
     Dates: start: 20210109, end: 20210109
  5. ASPIRIN. [Concomitant]
     Active Substance: ASPIRIN
     Indication: PROPHYLAXIS
     Dosage: 81 MG X UNKNOWN
     Route: 042
  6. ACYCLOVIR. [Concomitant]
     Active Substance: ACYCLOVIR
     Indication: PROPHYLAXIS
     Dosage: 200 MG X 2 X 1 DAYS
     Route: 042
     Dates: start: 20160424
  7. TYLENOL [Concomitant]
     Active Substance: ACETAMINOPHEN
     Indication: PRODUCT USED FOR UNKNOWN INDICATION
     Dosage: 650 MG X ONCE
     Route: 042
     Dates: start: 20210113, end: 20210113
  8. CYCLOPHOSPHAMIDE. [Suspect]
     Active Substance: CYCLOPHOSPHAMIDE
     Indication: FOLLICULAR LYMPHOMA
     Dosage: 470 MG X ONCE
     Route: 042
     Dates: start: 20210108, end: 20210108
  9. FLUCONAZOLE. [Concomitant]
     Active Substance: FLUCONAZOLE
     Indication: PROPHYLAXIS
     Dosage: 200 MG X 2 X 1 DAYS
     Route: 042
     Dates: start: 20210117, end: 20210119
  10. PENTAMIDINE [Concomitant]
     Active Substance: PENTAMIDINE
     Indication: PROPHYLAXIS
     Dosage: 300 MG X ONCE
     Route: 042
     Dates: start: 20210111, end: 20210111
  11. SODIUM CHLORIDE. [Concomitant]
     Active Substance: SODIUM CHLORIDE
     Dosage: 1,000 ML X ONCE
     Route: 042
     Dates: start: 20210110, end: 20210110
  12. JCAR017 [Suspect]
     Active Substance: LISOCABTAGENE MARALEUCEL
     Indication: FOLLICULAR LYMPHOMA
     Dosage: 100 10^6 CAR+ T CELLS X ONCE
     Route: 042
     Dates: start: 20210113, end: 20210113
  13. FLUDARABINE [Suspect]
     Active Substance: FLUDARABINE PHOSPHATE
     Dosage: 37.5 MG X ONCE
     Route: 042
     Dates: start: 20210110, end: 20210110
  14. SODIUM CHLORIDE. [Concomitant]
     Active Substance: SODIUM CHLORIDE
     Dosage: 1,000 ML X ONCE
     Route: 042
     Dates: start: 20210109, end: 20210109
  15. CYCLOPHOSPHAMIDE. [Suspect]
     Active Substance: CYCLOPHOSPHAMIDE
     Dosage: 470 MG X ONCE
     Route: 042
     Dates: start: 20210110, end: 20210110
  16. KEPPRA [Concomitant]
     Active Substance: LEVETIRACETAM
     Indication: PROPHYLAXIS
     Dosage: 500 MG X 2 X 1 DAYS
     Route: 042
  17. FLUDARABINE [Suspect]
     Active Substance: FLUDARABINE PHOSPHATE
     Indication: FOLLICULAR LYMPHOMA
     Dosage: 37.5 MG X ONCE
     Route: 042
     Dates: start: 20210108, end: 20210108
  18. KEPPRA [Concomitant]
     Active Substance: LEVETIRACETAM
     Dosage: 750 MG X 1 X 12 HOURS
     Route: 048
     Dates: start: 20210124
  19. ALLOPURINOL. [Concomitant]
     Active Substance: ALLOPURINOL
     Indication: PROPHYLAXIS
     Dosage: 300 MG X ONCE
     Route: 042
     Dates: start: 20210112, end: 20210118
  20. ZOVIRAX [Concomitant]
     Active Substance: ACYCLOVIR
     Dosage: 400 MG X 2 X 1 DAYS
     Route: 048
     Dates: start: 20210127

REACTIONS (2)
  - Neurotoxicity [Recovered/Resolved]
  - Cytokine release syndrome [Recovered/Resolved]

NARRATIVE: CASE EVENT DATE: 20210117
